FAERS Safety Report 22161550 (Version 1)
Quarter: 2023Q1

REPORT INFORMATION
  Report Type: Report from Study
  Country: US (occurrence: None)
  Receive Date: 20230331
  Receipt Date: 20230331
  Transmission Date: 20230418
  Serious: Yes (Hospitalization)
  Sender: FDA-Public Use
  Company Number: US-Eisai Medical Research-EC-2023-136940

PATIENT
  Age: 55 Year
  Sex: Female

DRUGS (1)
  1. LENVIMA [Suspect]
     Active Substance: LENVATINIB
     Indication: Product used for unknown indication
     Route: 048
     Dates: start: 2023

REACTIONS (5)
  - Asthenia [Not Recovered/Not Resolved]
  - Gait inability [Unknown]
  - Pain [Unknown]
  - Decubitus ulcer [Unknown]
  - Hypophagia [Unknown]

NARRATIVE: CASE EVENT DATE: 20230301
